FAERS Safety Report 6139124-X (Version None)
Quarter: 2009Q2

REPORT INFORMATION
  Report Type: 
  Country: None (occurrence: None)
  Receive Date: 20090401
  Receipt Date: 20090327
  Transmission Date: 20091009
  Serious: Yes (Other)
  Sender: FDA-Public Use
  Company Number: US-PFIZER INC-2009155033

PATIENT
  Sex: Male
  Weight: 92 kg

DRUGS (12)
  1. LIPITOR [Suspect]
     Indication: HYPERCHOLESTEROLAEMIA
     Dosage: 10 MG, 1X/DAY
     Dates: end: 20081101
  2. SPIRIVA [Concomitant]
     Dosage: UNK
  3. ADVAIR HFA [Concomitant]
     Dosage: UNK
  4. PROVENTIL [Concomitant]
     Dosage: UNK
  5. VITAMIN D [Concomitant]
     Dosage: UNK
  6. WARFARIN SODIUM [Concomitant]
     Dosage: UNK
  7. ATENOLOL [Concomitant]
     Dosage: UNK
  8. ACTOS [Concomitant]
     Dosage: UNK
  9. METFORMIN HYDROCHLORIDE [Concomitant]
     Dosage: UNK
  10. LASIX [Concomitant]
     Dosage: UNK
  11. AVAPRO [Concomitant]
     Dosage: UNK
  12. POTASSIUM CHLORIDE [Concomitant]
     Dosage: UNK

REACTIONS (7)
  - DIAPHRAGMATIC DISORDER [None]
  - DYSPNOEA [None]
  - MUSCLE DISORDER [None]
  - MYOPATHY [None]
  - RESPIRATORY DISORDER [None]
  - RESTRICTIVE PULMONARY DISEASE [None]
  - TOTAL LUNG CAPACITY DECREASED [None]
